FAERS Safety Report 10494938 (Version 1)
Quarter: 2014Q4

REPORT INFORMATION
  Report Type: Spontaneous
  Country: US (occurrence: None)
  Receive Date: 20141001
  Receipt Date: 20141001
  Transmission Date: 20150528
  Serious: Yes (Hospitalization, Other)
  Sender: FDA-Public Use
  Company Number: 2014ECL00011

PATIENT
  Age: 59 Year
  Sex: Female

DRUGS (6)
  1. PHENYLEPHRINE [Suspect]
     Active Substance: PHENYLEPHRINE\PHENYLEPHRINE HYDROCHLORIDE
     Indication: SINUSITIS
     Route: 048
  2. DEXTROMETHORPHAN [Concomitant]
     Active Substance: DEXTROMETHORPHAN
  3. CHLORPHENIRAMINE [Concomitant]
     Active Substance: CHLORPHENIRAMINE
  4. PHENYLEPHRINE [Suspect]
     Active Substance: PHENYLEPHRINE\PHENYLEPHRINE HYDROCHLORIDE
     Indication: SINUS HEADACHE
     Route: 048
  5. ACETAMINOPHEN. [Concomitant]
     Active Substance: ACETAMINOPHEN
  6. PSEUDOEPHEDRINE [Concomitant]
     Active Substance: PSEUDOEPHEDRINE

REACTIONS (11)
  - Apraxia [None]
  - Urinary incontinence [None]
  - Reversible cerebral vasoconstriction syndrome [None]
  - Intraventricular haemorrhage [None]
  - Headache [None]
  - Blood potassium decreased [None]
  - Faecal incontinence [None]
  - Hemiparesis [None]
  - Cerebral haemorrhage [None]
  - Aphasia [None]
  - Ataxia [None]
